FAERS Safety Report 10251310 (Version 1)
Quarter: 2014Q2

REPORT INFORMATION
  Report Type: Report from Study
  Country: US (occurrence: US)
  Receive Date: 20140621
  Receipt Date: 20140621
  Transmission Date: 20141212
  Serious: Yes (Hospitalization)
  Sender: FDA-Public Use
  Company Number: US-ABBVIE-14P-163-1247566-00

PATIENT
  Age: 39 Year
  Sex: Female
  Weight: 62.2 kg

DRUGS (2)
  1. LUPRON DEPOT [Suspect]
     Indication: ENDOMETRIOSIS
     Dates: start: 20140206
  2. LEXAPRO [Concomitant]
     Indication: PRODUCT USED FOR UNKNOWN INDICATION

REACTIONS (10)
  - Malnutrition [Unknown]
  - Dehydration [Unknown]
  - Alopecia [Unknown]
  - Decreased appetite [Unknown]
  - Abdominal pain [Unknown]
  - Endometriosis [Unknown]
  - Hypophagia [Unknown]
  - Blood glucose decreased [Unknown]
  - Muscle spasms [Unknown]
  - Pain [Unknown]
